FAERS Safety Report 8772939 (Version 2)
Quarter: 2012Q4

REPORT INFORMATION
  Report Type: 
  Country: AU (occurrence: AU)
  Receive Date: 20120908
  Receipt Date: 20120919
  Transmission Date: 20130627
  Serious: Yes (Death, Hospitalization)
  Sender: FDA-Public Use
  Company Number: AU-B.I. PHARMACEUTICALS,INC./RIDGEFIELD-2012-AU-01581AU

PATIENT
  Age: 80 Year
  Sex: Male
  Weight: 82.6 kg

DRUGS (9)
  1. PRADAXA [Suspect]
     Indication: CEREBROVASCULAR ACCIDENT PROPHYLAXIS
     Dates: start: 20110909
  2. PRADAXA [Suspect]
     Indication: ATRIAL FIBRILLATION
  3. INSULIN [Concomitant]
  4. UREX [Concomitant]
  5. LIPEX [Concomitant]
  6. ATACAND [Concomitant]
  7. SERETIDE [Concomitant]
  8. CARVEDILOL [Concomitant]
  9. VENTOLIN [Concomitant]

REACTIONS (5)
  - Dementia with Lewy bodies [Fatal]
  - Cardiomyopathy [Fatal]
  - Renal failure [Fatal]
  - Urinary tract infection [Unknown]
  - Sepsis [Unknown]
